FAERS Safety Report 7027513-0 (Version None)
Quarter: 2010Q4

REPORT INFORMATION
  Report Type: 
  Country: None (occurrence: None)
  Receive Date: 20101004
  Receipt Date: 20090629
  Transmission Date: 20110411
  Serious: Yes (Other)
  Sender: FDA-Public Use
  Company Number: CN-GENENTECH-307342

PATIENT

DRUGS (1)
  1. RITUXIMAB [Suspect]
     Indication: B-CELL LYMPHOMA
     Dosage: 375 MG/M2, UNK
     Route: 042

REACTIONS (10)
  - ARTHRALGIA [None]
  - BLOOD PRESSURE DECREASED [None]
  - BONE MARROW FAILURE [None]
  - CHEST DISCOMFORT [None]
  - COUGH [None]
  - DYSPNOEA [None]
  - FATIGUE [None]
  - LIVER INJURY [None]
  - PYREXIA [None]
  - RASH [None]
